FAERS Safety Report 19702544 (Version 1)
Quarter: 2021Q3

REPORT INFORMATION
  Report Type: Spontaneous
  Country: US (occurrence: US)
  Receive Date: 20210815
  Receipt Date: 20210815
  Transmission Date: 20211014
  Serious: No
  Sender: FDA-Public Use
  Company Number: US-SPECGX-T202002025

PATIENT
  Age: 58 Year
  Sex: Female
  Weight: 88 kg

DRUGS (2)
  1. OXYCODONE [Suspect]
     Active Substance: OXYCODONE
     Indication: BACK PAIN
     Dosage: 15 MILLIGRAM, Q6H
     Route: 065
     Dates: start: 202009
  2. LISINOPRIL. [Concomitant]
     Active Substance: LISINOPRIL
     Indication: HYPERTENSION
     Dosage: 20 MILLIGRAM
     Route: 065

REACTIONS (5)
  - Headache [Unknown]
  - Product taste abnormal [Unknown]
  - Feeling abnormal [Unknown]
  - Drug ineffective [Unknown]
  - Nausea [Unknown]

NARRATIVE: CASE EVENT DATE: 202009
